FAERS Safety Report 9266167 (Version 1)
Quarter: 2013Q2

REPORT INFORMATION
  Report Type: Report from Study
  Country: DE (occurrence: DE)
  Receive Date: 20130502
  Receipt Date: 20130502
  Transmission Date: 20140414
  Serious: Yes (Hospitalization)
  Sender: FDA-Public Use
  Company Number: DE-ROCHE-1219014

PATIENT
  Sex: Female

DRUGS (16)
  1. TOCILIZUMAB [Suspect]
     Indication: RHEUMATOID ARTHRITIS
     Route: 065
     Dates: start: 200907, end: 200910
  2. TOCILIZUMAB [Suspect]
     Route: 065
     Dates: start: 200912, end: 201101
  3. TOCILIZUMAB [Suspect]
     Route: 065
     Dates: start: 201108, end: 20120308
  4. VALORON [Suspect]
     Indication: PAIN
     Route: 065
     Dates: start: 200905
  5. CICLOSPORIN [Suspect]
     Indication: RHEUMATOID ARTHRITIS
     Route: 065
     Dates: start: 201203, end: 201205
  6. MTX [Suspect]
     Indication: RHEUMATOID ARTHRITIS
     Route: 048
     Dates: start: 200602, end: 200804
  7. MTX [Suspect]
     Route: 048
     Dates: start: 201006, end: 201101
  8. MTX [Suspect]
     Route: 048
     Dates: start: 201112
  9. MTX [Suspect]
     Route: 051
     Dates: start: 200804, end: 201006
  10. DICLOFENAC [Concomitant]
     Indication: PAIN
  11. CERTOLIZUMAB PEGOL [Concomitant]
     Indication: RHEUMATOID ARTHRITIS
     Route: 065
     Dates: start: 20120427
  12. FOLIC ACID [Concomitant]
     Route: 065
     Dates: start: 200602
  13. PREDNISOLON [Concomitant]
     Route: 065
     Dates: start: 201010
  14. PANTOZOL [Concomitant]
     Route: 065
     Dates: start: 201203
  15. RAMIPRIL [Concomitant]
     Route: 065
     Dates: start: 201203
  16. AMLODIPIN [Concomitant]
     Route: 065
     Dates: start: 201203

REACTIONS (4)
  - Renal failure acute [Not Recovered/Not Resolved]
  - Rheumatoid arthritis [Recovered/Resolved]
  - Aortic aneurysm [Not Recovered/Not Resolved]
  - Angina pectoris [Recovered/Resolved]
